FAERS Safety Report 8173995-0 (Version None)
Quarter: 2012Q1

REPORT INFORMATION
  Report Type: 
  Country: None (occurrence: None)
  Receive Date: 20120229
  Receipt Date: 20120220
  Transmission Date: 20120608
  Serious: Yes (Other)
  Sender: FDA-Public Use
  Company Number: AU-ROCHE-1043762

PATIENT
  Sex: Male

DRUGS (2)
  1. LUCENTIS [Suspect]
     Indication: AGE-RELATED MACULAR DEGENERATION
     Route: 050
     Dates: start: 20110501
  2. LUCENTIS [Suspect]
     Route: 050
     Dates: start: 20120101

REACTIONS (2)
  - BLINDNESS [None]
  - EYE HAEMORRHAGE [None]
